FAERS Safety Report 6343148-7 (Version None)
Quarter: 2009Q3

REPORT INFORMATION
  Report Type: 
  Country: None (occurrence: None)
  Receive Date: 20090821
  Receipt Date: 20090514
  Transmission Date: 20100115
  Serious: No
  Sender: FDA-Public Use
  Company Number: 8046416

PATIENT
  Age: 25 Year
  Sex: Female
  Weight: 81.64 kg

DRUGS (3)
  1. CIMZIA [Suspect]
     Indication: CROHN'S DISEASE
     Dosage: 400 MG 1/2W SC
     Route: 058
     Dates: start: 20081226, end: 20090123
  2. CIMZIA [Suspect]
     Indication: CROHN'S DISEASE
     Dosage: 400 MG /M SC
     Route: 058
     Dates: start: 20090220
  3. MULTI-VITAMINS [Concomitant]

REACTIONS (3)
  - CROHN'S DISEASE [None]
  - FIBROMYALGIA [None]
  - NAUSEA [None]
